FAERS Safety Report 9290205 (Version 1)
Quarter: 2013Q2

REPORT INFORMATION
  Report Type: Spontaneous
  Country: US (occurrence: None)
  Receive Date: 20130514
  Receipt Date: 20130514
  Transmission Date: 20140414
  Serious: Yes (Other)
  Sender: FDA-Public Use
  Company Number: None

PATIENT
  Age: 48 Year
  Sex: Female
  Weight: 72.58 kg

DRUGS (2)
  1. PRISTIQ [Suspect]
     Indication: ANXIETY
     Dates: start: 20121101, end: 20130513
  2. PRISTIQ [Suspect]
     Indication: DEPRESSION
     Dates: start: 20121101, end: 20130513

REACTIONS (1)
  - Photosensitivity reaction [None]
